FAERS Safety Report 5603958-8 (Version None)
Quarter: 2008Q1

REPORT INFORMATION
  Report Type: 
  Country: None (occurrence: None)
  Receive Date: 20080124
  Receipt Date: 20080124
  Transmission Date: 20080703
  Serious: Yes (Hospitalization, Other)
  Sender: FDA-Public Use
  Company Number: None

PATIENT
  Age: 35 Year
  Sex: Female
  Weight: 77.1115 kg

DRUGS (3)
  1. LEVAQUIN [Suspect]
     Indication: BRONCHITIS
     Dosage: 500 MG 500 Q DAILY IV
     Route: 042
     Dates: start: 20071104, end: 20071111
  2. LEVAQUIN [Suspect]
     Indication: PNEUMONIA
     Dosage: 500 MG 500 Q DAILY IV
     Route: 042
     Dates: start: 20071104, end: 20071111
  3. LEVAQUIN [Suspect]
     Dosage: 750MG 750MG DAILY PO
     Route: 048

REACTIONS (11)
  - ASTHENIA [None]
  - BLADDER DISORDER [None]
  - BRONCHITIS [None]
  - CONSTIPATION [None]
  - DEPRESSION [None]
  - HALLUCINATION [None]
  - INSOMNIA [None]
  - MUSCULOSKELETAL PAIN [None]
  - NEUROPATHY PERIPHERAL [None]
  - NIGHTMARE [None]
  - PNEUMONIA [None]
